FAERS Safety Report 26186992 (Version 1)
Quarter: 2025Q4

REPORT INFORMATION
  Report Type: Spontaneous
  Country: US (occurrence: None)
  Receive Date: 20251221
  Receipt Date: 20251221
  Transmission Date: 20260119
  Serious: Yes (Death)
  Sender: FDA-CTU
  Company Number: None

PATIENT
  Age: 31 Year
  Sex: Female
  Weight: 90.72 kg

DRUGS (3)
  1. DEXTROAMPHETAMINE SACCHARATE, AMPHETAMINE ASPARTATE, DEXTROAMPHETAMINE [Suspect]
     Active Substance: AMPHETAMINE ASPARTATE\AMPHETAMINE SULFATE\DEXTROAMPHETAMINE SACCHARATE\DEXTROAMPHETAMINE SULFATE
     Indication: Attention deficit hyperactivity disorder
     Dosage: 20 (DOSE) BID PO
     Route: 048
     Dates: end: 20251221
  2. DEXTROAMPHETAMINE SACCHARATE, AMPHETAMINE ASPARTATE, DEXTROAMPHETAMINE [Suspect]
     Active Substance: AMPHETAMINE ASPARTATE\AMPHETAMINE SULFATE\DEXTROAMPHETAMINE SACCHARATE\DEXTROAMPHETAMINE SULFATE
     Indication: Attention deficit hyperactivity disorder
     Dosage: 20MG BID PO
     Route: 048
     Dates: start: 202101, end: 202512
  3. AZITHROMYCIN [Concomitant]
     Active Substance: AZITHROMYCIN

REACTIONS (12)
  - Exposure during pregnancy [None]
  - Maternal drugs affecting foetus [None]
  - Abortion spontaneous [None]
  - Memory impairment [None]
  - Disorientation [None]
  - Migraine [None]
  - Irritability [None]
  - Mood swings [None]
  - Impulsive behaviour [None]
  - Hallucination [None]
  - Delusion [None]
  - Abnormal behaviour [None]

NARRATIVE: CASE EVENT DATE: 20230101
